FAERS Safety Report 6030540-3 (Version None)
Quarter: 2009Q1

REPORT INFORMATION
  Report Type: 
  Country: None (occurrence: None)
  Receive Date: 20090106
  Receipt Date: 20090106
  Transmission Date: 20090719
  Serious: Yes (Hospitalization)
  Sender: FDA-Public Use
  Company Number: None

PATIENT
  Sex: Male
  Weight: 149 kg

DRUGS (13)
  1. GEMCITABINE [Suspect]
     Indication: NON-SMALL CELL LUNG CANCER STAGE IV
     Dosage: 400 MG/M2
     Dates: start: 20081114, end: 20081128
  2. PEMETREXED [Suspect]
     Indication: NON-SMALL CELL LUNG CANCER STAGE IV
     Dosage: 1200 MG/M2
     Dates: start: 20081114, end: 20081128
  3. BEVACIZUMAB [Suspect]
     Indication: NON-SMALL CELL LUNG CANCER STAGE IV
     Dosage: 10 MG/KG
     Dates: start: 20081114, end: 20081128
  4. FOLIC ACID [Concomitant]
  5. NORVASC [Concomitant]
  6. GLUCOTROL [Concomitant]
  7. LISINOPRIL [Concomitant]
  8. M.V.I. [Concomitant]
  9. SIMVASTATIN [Concomitant]
  10. ASPIRIN [Concomitant]
  11. K DUR [Concomitant]
  12. COMBIVENT [Concomitant]
  13. XANAX [Concomitant]

REACTIONS (1)
  - PNEUMONIA [None]
